FAERS Safety Report 20083183 (Version 1)
Quarter: 2021Q4

REPORT INFORMATION
  Report Type: Spontaneous
  Country: DE (occurrence: DE)
  Receive Date: 20211117
  Receipt Date: 20211117
  Transmission Date: 20220303
  Serious: Yes (Congenital Anomaly, Other)
  Sender: FDA-Public Use
  Company Number: DE-EMBRYOTOX-202008196

PATIENT
  Age: 1 Day
  Sex: Male
  Weight: 3.41 kg

DRUGS (3)
  1. SERTRALINE [Suspect]
     Active Substance: SERTRALINE HYDROCHLORIDE
     Indication: Depression
     Dosage: 75 [MG/D ]/ SINCE APRIL THAT COULD BE BETWEEN GW 7 0/7 AND 11 1/7
     Route: 064
  2. L-THYROXIN                         /00068002/ [Concomitant]
     Indication: Hypothyroidism
     Dosage: 50 [?G/D ]
     Route: 064
     Dates: start: 20200213, end: 20201105
  3. HUMAN RHO(D) IMMUNE GLOBULIN [Concomitant]
     Active Substance: HUMAN RHO(D) IMMUNE GLOBULIN
     Indication: Prophylaxis against Rh isoimmunisation
     Dosage: UNK
     Route: 064
     Dates: start: 20200902, end: 20200902

REACTIONS (5)
  - Ventricular septal defect [Unknown]
  - Pulmonary artery stenosis [Unknown]
  - Atrial septal defect [Unknown]
  - Agitation neonatal [Recovered/Resolved]
  - Foetal exposure during pregnancy [Recovered/Resolved]

NARRATIVE: CASE EVENT DATE: 20201105
